FAERS Safety Report 16940747 (Version 2)
Quarter: 2019Q4

REPORT INFORMATION
  Report Type: Spontaneous
  Country: DE (occurrence: DE)
  Receive Date: 20191021
  Receipt Date: 20191218
  Transmission Date: 20200122
  Serious: Yes (Other)
  Sender: FDA-Public Use
  Company Number: DE-ROCHE-2434513

PATIENT
  Age: 2 Month
  Sex: Female
  Weight: 3.11 kg

DRUGS (3)
  1. FLUOXETINE [Suspect]
     Active Substance: FLUOXETINE HYDROCHLORIDE
     Indication: PRODUCT USED FOR UNKNOWN INDICATION
     Dosage: MATERNAL DOSE: 20 MG
     Route: 064
  2. AZATHIOPRINE. [Suspect]
     Active Substance: AZATHIOPRINE
     Indication: PRODUCT USED FOR UNKNOWN INDICATION
     Dosage: MATERNAL DOSE: 50 MG, BID
     Route: 064
  3. MYCOPHENOLATE MOFETIL. [Suspect]
     Active Substance: MYCOPHENOLATE MOFETIL
     Indication: PRODUCT USED FOR UNKNOWN INDICATION
     Dosage: MATERNAL DOSE (500 MG QID)?MATERNAL DOSE (2 GM)
     Route: 064

REACTIONS (5)
  - Moaning [Unknown]
  - Abdominal pain [Unknown]
  - Foetal exposure during pregnancy [Unknown]
  - Hypothermia [Unknown]
  - Adjustment disorder [Unknown]
